FAERS Safety Report 8439754-6 (Version None)
Quarter: 2012Q2

REPORT INFORMATION
  Report Type: 
  Country: None (occurrence: None)
  Receive Date: 20120615
  Receipt Date: 20120605
  Transmission Date: 20120825
  Serious: Yes (Other)
  Sender: FDA-Public Use
  Company Number: ES-ABBOTT-12P-144-0941195-00

PATIENT
  Age: 51 Year
  Sex: Female

DRUGS (3)
  1. CALCIPOTRIOL + BETAMETASONA [Concomitant]
     Indication: PSORIASIS
  2. HUMIRA [Suspect]
     Indication: PSORIATIC ARTHROPATHY
     Route: 058
     Dates: start: 20110501, end: 20120201
  3. HUMIRA [Suspect]
     Route: 058
     Dates: start: 20120201, end: 20120501

REACTIONS (5)
  - ANGIOPATHY [None]
  - PYREXIA [None]
  - SKIN LESION [None]
  - MALAISE [None]
  - DRUG INEFFECTIVE [None]
